FAERS Safety Report 7883983-7 (Version None)
Quarter: 2011Q4

REPORT INFORMATION
  Report Type: 
  Country: None (occurrence: None)
  Receive Date: 20111102
  Receipt Date: 20111026
  Transmission Date: 20120403
  Serious: Yes (Death, Hospitalization, Other)
  Sender: FDA-Public Use
  Company Number: PHHY2011ES95467

PATIENT

DRUGS (4)
  1. BENZNIDAZOLE [Concomitant]
     Indication: PROPHYLAXIS
     Dosage: (100 MG) EVERY 8 HOURS (5 MG/KG/DAY) FOR 60 DAYS
     Route: 048
  2. EVEROLIMUS [Suspect]
     Indication: LIVER TRANSPLANT
  3. FLUCONAZOLE [Concomitant]
     Indication: LIVER TRANSPLANT
     Dosage: UNK UKN, UNK
  4. MYCOPHENOLATE MOFETIL [Concomitant]
     Indication: LIVER TRANSPLANT
     Dosage: CONVENTIONAL DOSES

REACTIONS (8)
  - SPLENIC EMBOLISM [None]
  - METASTASES TO LUNG [None]
  - CARDIAC FAILURE [None]
  - DYSPNOEA [None]
  - CARDIAC VALVE DISEASE [None]
  - AMERICAN TRYPANOSOMIASIS [None]
  - CARDIOGENIC SHOCK [None]
  - RENAL EMBOLISM [None]
